FAERS Safety Report 6883745-3 (Version None)
Quarter: 2010Q3

REPORT INFORMATION
  Report Type: 
  Country: None (occurrence: None)
  Receive Date: 20100729
  Receipt Date: 20100726
  Transmission Date: 20110219
  Serious: Yes (Life-Threatening)
  Sender: FDA-Public Use
  Company Number: B0661685A

PATIENT
  Sex: Female
  Weight: 78 kg

DRUGS (5)
  1. PAZOPANIB [Suspect]
     Indication: NEOPLASM
     Dosage: 800MG CYCLIC
     Route: 048
     Dates: start: 20100121, end: 20100609
  2. EPIRUBICIN [Suspect]
     Indication: NEOPLASM
     Dosage: 90MGM2 CYCLIC
     Route: 042
     Dates: start: 20100112, end: 20100428
  3. METOPROLOL SUCCINATE [Concomitant]
     Dosage: 75MG PER DAY
  4. NEXIUM [Concomitant]
     Indication: STOMATITIS
     Dosage: 40MG PER DAY
     Route: 048
     Dates: start: 20070813
  5. NEURONTIN [Concomitant]
     Indication: PAIN
     Dosage: 400MG THREE TIMES PER DAY
     Route: 048
     Dates: start: 20030927

REACTIONS (1)
  - EJECTION FRACTION DECREASED [None]
